FAERS Safety Report 17299766 (Version 1)
Quarter: 2020Q1

REPORT INFORMATION
  Report Type: Spontaneous
  Country: US (occurrence: US)
  Receive Date: 20200122
  Receipt Date: 20200122
  Transmission Date: 20200409
  Serious: No
  Sender: FDA-Public Use
  Company Number: US-ALLERGAN-1904521US

PATIENT
  Sex: Female

DRUGS (3)
  1. BIRTH CONTROL PILL (UNSPECIFIED) [Concomitant]
     Indication: CONTRACEPTION
     Dosage: UNK
     Route: 048
  2. RESTASIS [Suspect]
     Active Substance: CYCLOSPORINE
     Dosage: 2 GTT, BID
     Route: 047
     Dates: start: 2013, end: 2014
  3. RESTASIS [Suspect]
     Active Substance: CYCLOSPORINE
     Indication: DRY EYE
     Dosage: 2 GTT, BID
     Route: 047
     Dates: start: 20190117

REACTIONS (1)
  - Multiple use of single-use product [Unknown]
